FAERS Safety Report 7167222-0 (Version None)
Quarter: 2010Q4

REPORT INFORMATION
  Report Type: 
  Country: None (occurrence: None)
  Receive Date: 20101213
  Receipt Date: 20101213
  Transmission Date: 20110411
  Serious: Yes (Hospitalization)
  Sender: FDA-Public Use
  Company Number: None

PATIENT
  Age: 81 Year
  Sex: Male
  Weight: 78.7 kg

DRUGS (2)
  1. WARFARIN SODIUM [Suspect]
     Indication: ATRIAL FIBRILLATION
     Dates: start: 20070101, end: 20100621
  2. WARFARIN SODIUM [Suspect]
     Indication: EPISTAXIS
     Dates: start: 20070101, end: 20100621

REACTIONS (4)
  - EPISTAXIS [None]
  - HAEMORRHAGE [None]
  - INTERNATIONAL NORMALISED RATIO INCREASED [None]
  - NO THERAPEUTIC RESPONSE [None]
